FAERS Safety Report 7817181-X (Version None)
Quarter: 2011Q4

REPORT INFORMATION
  Report Type: 
  Country: None (occurrence: None)
  Receive Date: 20111017
  Receipt Date: 20111017
  Transmission Date: 20120403
  Serious: Yes (Life-Threatening, Hospitalization)
  Sender: FDA-Public Use
  Company Number: None

PATIENT
  Age: 14 Year
  Sex: Male
  Weight: 52.163 kg

DRUGS (1)
  1. LOPERAMIDE HCL [Suspect]
     Indication: DIARRHOEA
     Dosage: 4MG
     Route: 048
     Dates: start: 20111015, end: 20111015

REACTIONS (3)
  - URTICARIA [None]
  - VOMITING [None]
  - LIP SWELLING [None]
